FAERS Safety Report 25765043 (Version 2)
Quarter: 2025Q4

REPORT INFORMATION
  Report Type: Spontaneous
  Country: US (occurrence: US)
  Receive Date: 20250905
  Receipt Date: 20251011
  Transmission Date: 20260118
  Serious: No
  Sender: Kenvue
  Company Number: US-KENVUE-20250804864

PATIENT
  Age: 71 Year
  Sex: Female

DRUGS (2)
  1. WOMENS ROGAINE UNSCENTED [Suspect]
     Active Substance: MINOXIDIL
     Indication: Alopecia
     Dosage: HALF CAP FULL, ONCE A DAY
     Route: 061
     Dates: start: 20250530, end: 2025
  2. WOMENS ROGAINE UNSCENTED [Suspect]
     Active Substance: MINOXIDIL
     Dosage: HALF CAPFUL , ONCE A DAY
     Route: 061
     Dates: start: 20250807, end: 202508

REACTIONS (3)
  - Application site pain [Recovering/Resolving]
  - Product container issue [Unknown]
  - Poor quality product administered [Unknown]

NARRATIVE: CASE EVENT DATE: 20250530
